FAERS Safety Report 13413932 (Version 3)
Quarter: 2023Q2

REPORT INFORMATION
  Report Type: Spontaneous
  Country: US (occurrence: US)
  Receive Date: 20170406
  Receipt Date: 20230426
  Transmission Date: 20230721
  Serious: No
  Sender: FDA-Public Use
  Company Number: US-JNJFOC-20170313994

PATIENT
  Sex: Male

DRUGS (6)
  1. RISPERDAL [Suspect]
     Active Substance: RISPERIDONE
     Indication: Autism spectrum disorder
     Dosage: 0.5MG AND 1MG
     Route: 048
     Dates: start: 20080215, end: 20101006
  2. RISPERDAL [Suspect]
     Active Substance: RISPERIDONE
     Indication: Disturbance in social behaviour
  3. RISPERIDONE [Suspect]
     Active Substance: RISPERIDONE
     Indication: Autism spectrum disorder
     Route: 048
     Dates: start: 20100131, end: 20100303
  4. RISPERIDONE [Suspect]
     Active Substance: RISPERIDONE
     Indication: Disturbance in social behaviour
  5. RISPERDAL M-TAB [Suspect]
     Active Substance: RISPERIDONE
     Indication: Autism spectrum disorder
     Route: 048
  6. RISPERDAL M-TAB [Suspect]
     Active Substance: RISPERIDONE
     Indication: Disturbance in social behaviour

REACTIONS (2)
  - Emotional disorder [Unknown]
  - Gynaecomastia [Unknown]
